FAERS Safety Report 16467672 (Version 1)
Quarter: 2019Q2

REPORT INFORMATION
  Report Type: Spontaneous
  Country: US (occurrence: US)
  Receive Date: 20190624
  Receipt Date: 20190624
  Transmission Date: 20190711
  Serious: No
  Sender: FDA-Public Use
  Company Number: US-APOTEX-2019AP007319

PATIENT
  Age: 5 Year
  Sex: Female

DRUGS (2)
  1. CYCLOSPORINE. [Suspect]
     Active Substance: CYCLOSPORINE
     Indication: IMMUNOSUPPRESSANT DRUG THERAPY
     Dosage: 6 MG/KG, UNK
     Route: 065
     Dates: start: 201501, end: 201509
  2. RITUXIMAB. [Concomitant]
     Active Substance: RITUXIMAB
     Indication: IMMUNE THROMBOCYTOPENIC PURPURA
     Dosage: 375 MG/M2, Q.WK. (IN OCTOBER 2014 AND MAY 2015)
     Route: 065

REACTIONS (4)
  - Affect lability [Unknown]
  - Hirsutism [Unknown]
  - Decreased appetite [Unknown]
  - Nausea [Unknown]
